FAERS Safety Report 24694502 (Version 1)
Quarter: 2024Q4

REPORT INFORMATION
  Report Type: Spontaneous
  Country: US (occurrence: US)
  Receive Date: 20241204
  Receipt Date: 20241204
  Transmission Date: 20250114
  Serious: Yes (Other)
  Sender: JOHNSON AND JOHNSON
  Company Number: US-JNJFOC-20241200839

PATIENT
  Sex: Male

DRUGS (1)
  1. TRACLEER [Suspect]
     Active Substance: BOSENTAN
     Indication: Product used for unknown indication
     Route: 048

REACTIONS (6)
  - Gangrene [Unknown]
  - Cough [Unknown]
  - Skin lesion [Unknown]
  - Skin ulcer [Unknown]
  - Skin injury [Unknown]
  - Skin discolouration [Unknown]
